FAERS Safety Report 4970792-1 (Version None)
Quarter: 2006Q2

REPORT INFORMATION
  Report Type: 
  Country: None (occurrence: None)
  Receive Date: 20060406
  Receipt Date: 20060322
  Transmission Date: 20061013
  Serious: Yes (Hospitalization, Other)
  Sender: FDA-Public Use
  Company Number: US_0509121533

PATIENT
  Age: 47 Year
  Sex: Male
  Weight: 93.4 kg

DRUGS (10)
  1. ZYPREXA [Suspect]
     Indication: BIPOLAR DISORDER
     Dosage: SEE IMAGE
     Route: 048
     Dates: end: 20030801
  2. ZYPREXA [Suspect]
     Indication: BIPOLAR DISORDER
     Dosage: SEE IMAGE
     Route: 048
     Dates: start: 20030107
  3. LEXAPRO /USA/ (ESCITALOPRAM) [Concomitant]
  4. TEGRETOL [Concomitant]
  5. PREVACID [Concomitant]
  6. LITHIUM (LITHIUM) [Concomitant]
  7. CELEXA [Concomitant]
  8. ZOCOR [Concomitant]
  9. ATIVAN [Concomitant]
  10. RESTORIL [Concomitant]

REACTIONS (19)
  - BLOOD CHOLESTEROL INCREASED [None]
  - BLOOD CREATININE INCREASED [None]
  - BLOOD TRIGLYCERIDES INCREASED [None]
  - CARDIOVASCULAR FUNCTION TEST ABNORMAL [None]
  - CAROTID ARTERY STENOSIS [None]
  - CHEST PAIN [None]
  - CHRONIC OBSTRUCTIVE PULMONARY DISEASE [None]
  - CORONARY ARTERY DISEASE [None]
  - DEHYDRATION [None]
  - HAEMOPTYSIS [None]
  - HAEMORRHOIDS [None]
  - HYPERGLYCAEMIA [None]
  - HYPOAESTHESIA [None]
  - HYPOKALAEMIA [None]
  - INTESTINAL POLYP [None]
  - LOWER GASTROINTESTINAL HAEMORRHAGE [None]
  - PANCREATITIS ACUTE [None]
  - PRESCRIBED OVERDOSE [None]
  - WEIGHT INCREASED [None]
